FAERS Safety Report 13608179 (Version 2)
Quarter: 2017Q2

REPORT INFORMATION
  Report Type: Spontaneous
  Country: US (occurrence: US)
  Receive Date: 20170602
  Receipt Date: 20170614
  Transmission Date: 20170830
  Serious: Yes (Hospitalization, Other)
  Sender: FDA-Public Use
  Company Number: US-AMGEN-USASP2017083203

PATIENT
  Sex: Female

DRUGS (1)
  1. PROLIA [Suspect]
     Active Substance: DENOSUMAB
     Indication: OSTEOPOROSIS
     Dosage: UNK
     Route: 065

REACTIONS (5)
  - Fall [Unknown]
  - Compression fracture [Unknown]
  - Osteoporosis [Not Recovered/Not Resolved]
  - Tooth disorder [Unknown]
  - Hip fracture [Unknown]

NARRATIVE: CASE EVENT DATE: 201705
